FAERS Safety Report 4326361-X (Version None)
Quarter: 2004Q1

REPORT INFORMATION
  Report Type: 
  Country: None (occurrence: None)
  Receive Date: 20040323
  Receipt Date: 20040311
  Transmission Date: 20041129
  Serious: Yes (Other)
  Sender: FDA-Public Use
  Company Number: 2004-DE-01213GD

PATIENT
  Age: 13 Year
  Sex: Male

DRUGS (6)
  1. PREDNISONE [Suspect]
     Indication: PANNICULITIS
     Dosage: 60 MG (NR, THRICE DAILY), PO
     Route: 048
  2. AZATHIOPRINE [Suspect]
     Indication: PANNICULITIS
     Dosage: 100 MG (NR), NR
  3. CYCLOPHOSPHAMIDE [Suspect]
     Indication: PERIPHERAL T-CELL LYMPHOMA UNSPECIFIED
     Dosage: NR
  4. HYDROXYCHLOROQUINE SULFATE [Suspect]
     Indication: PANNICULITIS
     Dosage: 300 MG (NR), NR
  5. DOXORUBICIN HCL [Suspect]
     Indication: PERIPHERAL T-CELL LYMPHOMA UNSPECIFIED
     Dosage: NR (NR), NR
  6. VINCRISTINE [Suspect]
     Indication: PERIPHERAL T-CELL LYMPHOMA UNSPECIFIED
     Dosage: NR (NR), NR

REACTIONS (12)
  - ANTIBODY TEST POSITIVE [None]
  - BLOOD LACTATE DEHYDROGENASE INCREASED [None]
  - DISEASE RECURRENCE [None]
  - HISTIOCYTOSIS HAEMATOPHAGIC [None]
  - NECROSIS [None]
  - PANNICULITIS LOBULAR [None]
  - PERIPHERAL T-CELL LYMPHOMA UNSPECIFIED [None]
  - PYREXIA [None]
  - RASH ERYTHEMATOUS [None]
  - RED BLOOD CELL SEDIMENTATION RATE INCREASED [None]
  - SKIN NODULE [None]
  - TENDERNESS [None]
